FAERS Safety Report 9452831 (Version 2)
Quarter: 2013Q4

REPORT INFORMATION
  Report Type: Spontaneous
  Country: JP (occurrence: JP)
  Receive Date: 20130812
  Receipt Date: 20131112
  Transmission Date: 20140711
  Serious: Yes (Hospitalization)
  Sender: FDA-Public Use
  Company Number: JP-JNJFOC-20130802710

PATIENT
  Age: 82 Year
  Sex: Female

DRUGS (4)
  1. FINIBAX [Suspect]
     Indication: BRAIN ABSCESS
     Route: 041
  2. FLAGYL [Suspect]
     Indication: BRAIN ABSCESS
     Route: 048
     Dates: start: 2013, end: 20130703
  3. VANCOMYCIN [Concomitant]
     Indication: BRAIN ABSCESS
     Route: 041
  4. MEROPENEM [Concomitant]
     Indication: BRAIN ABSCESS
     Route: 041

REACTIONS (1)
  - Toxic encephalopathy [Recovered/Resolved]
